FAERS Safety Report 7363612-1 (Version None)
Quarter: 2011Q1

REPORT INFORMATION
  Report Type: 
  Country: None (occurrence: None)
  Receive Date: 20110321
  Receipt Date: 20110314
  Transmission Date: 20110831
  Serious: Yes (Other)
  Sender: FDA-Public Use
  Company Number: US-PFIZER INC-2011015617

PATIENT
  Sex: Female
  Weight: 45.4 kg

DRUGS (5)
  1. DEPO-PROVERA [Suspect]
     Dosage: UNK
     Dates: start: 20100414
  2. DEPO-PROVERA [Suspect]
     Dosage: UNK
     Dates: start: 20100118
  3. DEPO-PROVERA [Suspect]
     Indication: CONTRACEPTION
     Dosage: UNK
     Route: 030
     Dates: start: 20100801, end: 20100101
  4. LORATADINE [Concomitant]
     Dosage: 10 MG, 1X/DAY
     Route: 048
  5. DEPO-PROVERA [Suspect]
     Dosage: UNK
     Dates: start: 20091029

REACTIONS (8)
  - PARANOIA [None]
  - PSYCHIATRIC SYMPTOM [None]
  - MENSTRUATION IRREGULAR [None]
  - PELVIC PAIN [None]
  - DEPRESSION [None]
  - IMPAIRED DRIVING ABILITY [None]
  - MENORRHAGIA [None]
  - DYSMENORRHOEA [None]
